FAERS Safety Report 24902709 (Version 2)
Quarter: 2025Q1

REPORT INFORMATION
  Report Type: Spontaneous
  Country: PT (occurrence: PT)
  Receive Date: 20250130
  Receipt Date: 20250208
  Transmission Date: 20250409
  Serious: Yes (Hospitalization, Other)
  Sender: AUROBINDO
  Company Number: PT-ORESUND-25OPAJY0011P

PATIENT
  Age: 81 Year
  Sex: Male

DRUGS (3)
  1. ZOLEDRONIC ACID [Suspect]
     Active Substance: ZOLEDRONIC ACID
     Indication: Osteoporosis
     Route: 042
  2. METHOTREXATE [Suspect]
     Active Substance: METHOTREXATE
     Indication: Rheumatoid arthritis
     Dosage: 12 MILLIGRAM, EVERY WEEK
     Route: 065
  3. CORTICOSTEROID NOS [Suspect]
     Active Substance: CORTICOSTEROID NOS
     Indication: Rheumatoid arthritis
     Route: 065

REACTIONS (16)
  - Kidney infection [Recovering/Resolving]
  - Renal tubular necrosis [Recovering/Resolving]
  - Hypokalaemia [Recovering/Resolving]
  - Acute kidney injury [Unknown]
  - Hypocalcaemia [Recovering/Resolving]
  - Asthenia [Unknown]
  - Decreased appetite [Unknown]
  - Diarrhoea [Unknown]
  - Vomiting [Unknown]
  - Hypovolaemia [Recovering/Resolving]
  - Hypomagnesaemia [Unknown]
  - Hypophosphataemia [Recovering/Resolving]
  - Blood parathyroid hormone increased [Recovering/Resolving]
  - Vitamin D decreased [Recovering/Resolving]
  - Paraesthesia [Recovering/Resolving]
  - Off label use [Unknown]
